FAERS Safety Report 4913580-4 (Version None)
Quarter: 2006Q1

REPORT INFORMATION
  Report Type: 
  Country: None (occurrence: None)
  Receive Date: 20060216
  Receipt Date: 20060206
  Transmission Date: 20060701
  Serious: Yes (Other)
  Sender: FDA-Public Use
  Company Number: PHFR2006GB00757

PATIENT
  Age: 56 Year
  Sex: Female

DRUGS (2)
  1. DICLOFENAC [Suspect]
     Indication: BACK PAIN
     Route: 065
     Dates: start: 20060105, end: 20060105
  2. NAPROXEN [Concomitant]
     Indication: NECK PAIN
     Dosage: 250MG/DAY
     Route: 048
     Dates: start: 20051205, end: 20060105

REACTIONS (5)
  - BLINDNESS [None]
  - ERYTHEMA [None]
  - SKIN BURNING SENSATION [None]
  - SWOLLEN TONGUE [None]
  - VOMITING [None]
